FAERS Safety Report 20404613 (Version 1)
Quarter: 2022Q1

REPORT INFORMATION
  Report Type: Spontaneous
  Country: US (occurrence: US)
  Receive Date: 20220131
  Receipt Date: 20220131
  Transmission Date: 20220423
  Serious: No
  Sender: FDA-Public Use
  Company Number: US-ALLERGAN-2117478US

PATIENT
  Sex: Female

DRUGS (3)
  1. BOTOX COSMETIC [Suspect]
     Active Substance: ONABOTULINUMTOXINA
     Indication: Skin wrinkling
     Dosage: UNK, SINGLE
     Dates: start: 20210331, end: 20210331
  2. JUVEDERM ULTRA [Suspect]
     Active Substance: HYALURONIC ACID
     Indication: Lip cosmetic procedure
     Dosage: 1 ML, SINGLE
     Dates: start: 20210331, end: 20210331
  3. JUVEDERM ULTRA [Suspect]
     Active Substance: HYALURONIC ACID
     Indication: Skin wrinkling

REACTIONS (3)
  - Hypoaesthesia oral [Unknown]
  - Speech disorder [Unknown]
  - Injection site mass [Unknown]
